FAERS Safety Report 9421185 (Version 1)
Quarter: 2013Q3

REPORT INFORMATION
  Report Type: Spontaneous
  Country: DK (occurrence: DK)
  Receive Date: 20130725
  Receipt Date: 20130725
  Transmission Date: 20140515
  Serious: Yes (Other)
  Sender: FDA-Public Use
  Company Number: DK-BAXTER-2013BAX028756

PATIENT
  Sex: Female

DRUGS (13)
  1. SENDOXAN [Suspect]
     Indication: BREAST CANCER
     Route: 065
     Dates: start: 2003
  2. NAVELBINE [Suspect]
     Indication: BREAST CANCER
     Route: 065
  3. HERCEPTIN [Suspect]
     Indication: DISEASE PROGRESSION
     Route: 065
     Dates: start: 200701
  4. XELODA [Suspect]
     Indication: DISEASE PROGRESSION
     Route: 065
     Dates: start: 200812
  5. TAXOTERE [Suspect]
     Indication: DISEASE PROGRESSION
     Route: 065
     Dates: start: 200701
  6. ERIBULIN [Suspect]
     Indication: DISEASE PROGRESSION
     Route: 065
     Dates: start: 201201, end: 201301
  7. GEMCITABINE [Suspect]
     Indication: DISEASE PROGRESSION
     Route: 065
  8. CARBOPLATIN [Suspect]
     Indication: DISEASE PROGRESSION
     Route: 065
  9. LAPATINIB [Suspect]
     Indication: DISEASE PROGRESSION
     Route: 065
     Dates: start: 20100719, end: 201201
  10. METHOTREXATE [Suspect]
     Indication: BREAST CANCER
     Route: 065
     Dates: start: 2003
  11. FLUOROURACIL [Suspect]
     Indication: BREAST CANCER
     Route: 065
     Dates: start: 2003
  12. EPIRUBICIN [Suspect]
     Indication: BREAST CANCER
     Route: 065
     Dates: start: 2003
  13. CORODIL [Concomitant]
     Indication: PRODUCT USED FOR UNKNOWN INDICATION
     Route: 065

REACTIONS (2)
  - Disease progression [Not Recovered/Not Resolved]
  - Cardiac disorder [Unknown]
